FAERS Safety Report 24311610 (Version 1)
Quarter: 2024Q3

REPORT INFORMATION
  Report Type: Spontaneous
  Country: UA (occurrence: UA)
  Receive Date: 20240912
  Receipt Date: 20240912
  Transmission Date: 20241016
  Serious: Yes (Death)
  Sender: MYLAN
  Company Number: UA-MYLANLABS-2024M1083098

PATIENT
  Age: 38 Year
  Sex: Male

DRUGS (5)
  1. PRETOMANID [Suspect]
     Active Substance: PRETOMANID
     Indication: Tuberculosis
     Dosage: 200 MILLIGRAM, QD
     Route: 048
     Dates: start: 20240307, end: 20240812
  2. LINEZOLID [Suspect]
     Active Substance: LINEZOLID
     Indication: Tuberculosis
     Dosage: 600 MILLIGRAM, QD (0.6 GRAM(S) 1/1 DAY(S))
     Route: 048
     Dates: start: 20240307, end: 20240812
  3. BEDAQUILINE [Suspect]
     Active Substance: BEDAQUILINE
     Indication: Tuberculosis
     Dosage: 400 MILLIGRAM, QW
     Route: 048
     Dates: start: 20240307, end: 20240320
  4. BEDAQUILINE [Suspect]
     Active Substance: BEDAQUILINE
     Dosage: 200 MILLIGRAM, 3XW (0.2 GRAM(S) 3/1 WEEK(S))
     Route: 048
     Dates: start: 20240321, end: 20240812
  5. MOXIFLOXACIN [Suspect]
     Active Substance: MOXIFLOXACIN
     Indication: Tuberculosis
     Dosage: 400 MILLIGRAM, QD (0.4 GRAM(S) 1/1 DAY(S))
     Route: 048
     Dates: start: 20240307, end: 20240812

REACTIONS (1)
  - Death [Fatal]

NARRATIVE: CASE EVENT DATE: 20240812
